FAERS Safety Report 6113664-1 (Version None)
Quarter: 2009Q1

REPORT INFORMATION
  Report Type: 
  Country: None (occurrence: None)
  Receive Date: 20090312
  Receipt Date: 20090303
  Transmission Date: 20090719
  Serious: No
  Sender: FDA-Public Use
  Company Number: PHHY2009US07778

PATIENT
  Sex: Female

DRUGS (2)
  1. TASIGNA [Suspect]
     Indication: CHRONIC MYELOID LEUKAEMIA
     Dosage: 400 MG, BID
     Route: 048
  2. FLUOXETINE [Concomitant]
     Dosage: 10 MG/DAY
     Route: 048

REACTIONS (2)
  - LABELLED DRUG-FOOD INTERACTION MEDICATION ERROR [None]
  - SKIN DISORDER [None]
